FAERS Safety Report 11967100 (Version 1)
Quarter: 2016Q1

REPORT INFORMATION
  Report Type: Spontaneous
  Country: CA (occurrence: CA)
  Receive Date: 20160127
  Receipt Date: 20160127
  Transmission Date: 20160526
  Serious: Yes (Life-Threatening, Hospitalization, Other)
  Sender: FDA-Public Use
  Company Number: CA-WATSON-2016-01347

PATIENT
  Age: 12 Year
  Sex: Female
  Weight: 51 kg

DRUGS (1)
  1. BUPROPION HYDROCHLORIDE (UNKNOWN) [Suspect]
     Active Substance: BUPROPION HYDROCHLORIDE
     Indication: SUICIDE ATTEMPT
     Dosage: 41 300-MG TABLETS OF EXTENDED RELEASE BUPROPION
     Route: 048

REACTIONS (14)
  - Somnolence [Unknown]
  - Tachycardia [Unknown]
  - Nystagmus [Unknown]
  - Suicide attempt [Recovered/Resolved]
  - Mydriasis [Unknown]
  - Generalised tonic-clonic seizure [Recovered/Resolved]
  - Vomiting [Unknown]
  - Confusional state [Unknown]
  - Choreoathetosis [Recovered/Resolved]
  - Intentional overdose [Recovering/Resolving]
  - Rhabdomyolysis [Recovering/Resolving]
  - Headache [Unknown]
  - Electrocardiogram QT prolonged [Recovered/Resolved]
  - Myoclonus [Recovered/Resolved]
